FAERS Safety Report 22271321 (Version 1)
Quarter: 2023Q2

REPORT INFORMATION
  Report Type: Spontaneous
  Country: US (occurrence: US)
  Receive Date: 20230501
  Receipt Date: 20230501
  Transmission Date: 20230722
  Serious: No
  Sender: FDA-Public Use
  Company Number: US-LUNDBECK-DKLU3060306

PATIENT
  Age: 75 Year
  Sex: Male

DRUGS (1)
  1. VYEPTI [Suspect]
     Active Substance: EPTINEZUMAB-JJMR
     Indication: Migraine
     Route: 041
     Dates: start: 20230327

REACTIONS (4)
  - Pharyngitis [Unknown]
  - Pyrexia [Unknown]
  - Cough [Unknown]
  - Discomfort [Unknown]

NARRATIVE: CASE EVENT DATE: 20230328
